FAERS Safety Report 4722938-8 (Version None)
Quarter: 2005Q3

REPORT INFORMATION
  Report Type: 
  Country: None (occurrence: None)
  Receive Date: 20050719
  Receipt Date: 20041004
  Transmission Date: 20060218
  Serious: Yes (Other)
  Sender: FDA-Public Use
  Company Number: 2004233661US

PATIENT
  Sex: 0

DRUGS (1)
  1. CELEBREX [Suspect]
     Indication: BURSITIS
     Dosage: 200 MG, QD
     Dates: start: 20040615, end: 20040901

REACTIONS (1)
  - RENAL FAILURE [None]
